FAERS Safety Report 23878175 (Version 5)
Quarter: 2025Q4

REPORT INFORMATION
  Report Type: Spontaneous
  Country: EU (occurrence: None)
  Receive Date: 20240521
  Receipt Date: 20251117
  Transmission Date: 20260119
  Serious: Yes (Hospitalization, Disabling, Other)
  Sender: UCB
  Company Number: None

PATIENT
  Age: 49 Year

DRUGS (43)
  1. KEPPRA [Suspect]
     Active Substance: LEVETIRACETAM
     Indication: Epilepsy
     Dosage: 500 MILLIGRAM, 2X/DAY (BID) (1 TABLET IN THE MORNING AND THE EVENING, FOR 1 MONTH, TO BE RENEWED TWICE)
  2. KEPPRA [Suspect]
     Active Substance: LEVETIRACETAM
     Indication: Heavy menstrual bleeding
     Dosage: UNK
  3. KEPPRA [Suspect]
     Active Substance: LEVETIRACETAM
     Indication: Intermenstrual bleeding
     Dosage: UNK
  4. KEPPRA [Suspect]
     Active Substance: LEVETIRACETAM
     Dosage: UNK
  5. KEPPRA [Suspect]
     Active Substance: LEVETIRACETAM
     Dosage: UNK
  6. KEPPRA [Suspect]
     Active Substance: LEVETIRACETAM
     Dosage: UNK
  7. KEPPRA [Suspect]
     Active Substance: LEVETIRACETAM
     Dosage: UNK
  8. KEPPRA [Suspect]
     Active Substance: LEVETIRACETAM
     Dosage: UNK
  9. KEPPRA [Suspect]
     Active Substance: LEVETIRACETAM
     Dosage: UNK
  10. KEPPRA [Suspect]
     Active Substance: LEVETIRACETAM
     Dosage: UNK
  11. NOMEGESTROL [Suspect]
     Active Substance: NOMEGESTROL
     Indication: Heavy menstrual bleeding
     Dosage: UNK
  12. NOMEGESTROL [Suspect]
     Active Substance: NOMEGESTROL
     Indication: Intermenstrual bleeding
     Dosage: UNK
  13. NOMEGESTROL [Suspect]
     Active Substance: NOMEGESTROL
     Dosage: UNK
  14. NOMEGESTROL [Suspect]
     Active Substance: NOMEGESTROL
     Dosage: UNK
  15. NOMEGESTROL [Suspect]
     Active Substance: NOMEGESTROL
     Dosage: UNK
  16. NOMEGESTROL [Suspect]
     Active Substance: NOMEGESTROL
     Dosage: UNK
  17. NOMEGESTROL [Suspect]
     Active Substance: NOMEGESTROL
     Dosage: UNK
  18. NOMEGESTROL [Suspect]
     Active Substance: NOMEGESTROL
     Dosage: UNK
  19. NOMEGESTROL [Suspect]
     Active Substance: NOMEGESTROL
     Dosage: UNK
  20. NOMEGESTROL [Suspect]
     Active Substance: NOMEGESTROL
     Dosage: UNK
  21. NOMEGESTROL [Suspect]
     Active Substance: NOMEGESTROL
     Dosage: 5 MILLIGRAM
  22. NOMEGESTROL [Suspect]
     Active Substance: NOMEGESTROL
     Dosage: UNK
  23. NOMEGESTROL [Suspect]
     Active Substance: NOMEGESTROL
     Dosage: UNK
  24. NOMEGESTROL [Suspect]
     Active Substance: NOMEGESTROL
     Dosage: UNK
  25. NOMEGESTROL [Suspect]
     Active Substance: NOMEGESTROL
     Dosage: UNK
  26. NOMEGESTROL [Suspect]
     Active Substance: NOMEGESTROL
     Dosage: 5 MILLIGRAM
  27. CHLORMADINONE ACETATE [Suspect]
     Active Substance: CHLORMADINONE ACETATE
     Indication: Intermenstrual bleeding
     Dosage: UNK
  28. NOMEGESTROL ACETATE [Suspect]
     Active Substance: NOMEGESTROL ACETATE
     Indication: Intermenstrual bleeding
     Dosage: UNK
  29. NOMEGESTROL ACETATE [Suspect]
     Active Substance: NOMEGESTROL ACETATE
     Indication: Heavy menstrual bleeding
     Dosage: UNK
  30. NOMEGESTROL ACETATE [Suspect]
     Active Substance: NOMEGESTROL ACETATE
     Dosage: UNK
  31. NOMEGESTROL ACETATE [Suspect]
     Active Substance: NOMEGESTROL ACETATE
     Dosage: UNK
  32. NOMEGESTROL ACETATE [Suspect]
     Active Substance: NOMEGESTROL ACETATE
     Dosage: UNK
  33. NOMEGESTROL ACETATE [Suspect]
     Active Substance: NOMEGESTROL ACETATE
     Dosage: UNK
  34. NOMEGESTROL ACETATE [Suspect]
     Active Substance: NOMEGESTROL ACETATE
     Dosage: UNK
  35. NOMEGESTROL ACETATE [Suspect]
     Active Substance: NOMEGESTROL ACETATE
     Dosage: UNK
  36. NOMEGESTROL ACETATE [Suspect]
     Active Substance: NOMEGESTROL ACETATE
     Dosage: UNK
  37. NOMEGESTROL ACETATE [Suspect]
     Active Substance: NOMEGESTROL ACETATE
     Dosage: UNK
  38. NOMEGESTROL ACETATE [Suspect]
     Active Substance: NOMEGESTROL ACETATE
     Dosage: UNK
  39. NOMEGESTROL ACETATE [Suspect]
     Active Substance: NOMEGESTROL ACETATE
     Dosage: UNK
  40. NOMEGESTROL ACETATE [Suspect]
     Active Substance: NOMEGESTROL ACETATE
     Dosage: UNK
  41. PROMEGESTONE [Suspect]
     Active Substance: PROMEGESTONE
     Indication: Product used for unknown indication
     Dosage: UNK
  42. PROMEGESTONE [Suspect]
     Active Substance: PROMEGESTONE
     Dosage: UNK
  43. PROMEGESTONE [Suspect]
     Active Substance: PROMEGESTONE
     Dosage: UNK

REACTIONS (4)
  - Meningioma benign [Recovered/Resolved with Sequelae]
  - Meningioma surgery [Unknown]
  - Asthenia [Unknown]
  - Feeling abnormal [Unknown]
